FAERS Safety Report 6884299-8 (Version None)
Quarter: 2010Q3

REPORT INFORMATION
  Report Type: 
  Country: None (occurrence: None)
  Receive Date: 20100729
  Receipt Date: 20070612
  Transmission Date: 20110219
  Serious: No
  Sender: FDA-Public Use
  Company Number: US-PFIZER INC-2007048764

PATIENT
  Sex: Female
  Weight: 106 kg

DRUGS (2)
  1. CELEBREX [Suspect]
     Indication: ARTHRALGIA
     Route: 048
     Dates: start: 20070611, end: 20070612
  2. INTERFERON BETA [Concomitant]
     Indication: MULTIPLE SCLEROSIS

REACTIONS (1)
  - PRURITUS [None]
